FAERS Safety Report 5698187-6 (Version None)
Quarter: 2008Q2

REPORT INFORMATION
  Report Type: 
  Country: None (occurrence: None)
  Receive Date: 20080408
  Receipt Date: 20080327
  Transmission Date: 20081010
  Serious: Yes (Hospitalization)
  Sender: FDA-Public Use
  Company Number: JP-PFIZER INC-2008024612

PATIENT
  Sex: Male

DRUGS (4)
  1. ESTRACYT [Suspect]
     Indication: PROSTATE CANCER
     Route: 048
     Dates: start: 20080131, end: 20080218
  2. ACETYLSALICYLIC ACID SRT [Concomitant]
     Indication: ATRIAL FIBRILLATION
     Route: 048
  3. DIGOXIN [Concomitant]
     Indication: ATRIAL FIBRILLATION
     Route: 048
     Dates: start: 19830101
  4. FAMOTIDINE [Concomitant]
     Indication: GASTRIC MUCOSAL LESION
     Route: 048

REACTIONS (2)
  - OEDEMA PERIPHERAL [None]
  - PLEURAL EFFUSION [None]
